FAERS Safety Report 9398746 (Version 3)
Quarter: 2014Q3

REPORT INFORMATION
  Report Type: Spontaneous
  Country: DK (occurrence: DK)
  Receive Date: 20130712
  Receipt Date: 20140910
  Transmission Date: 20150326
  Serious: Yes (Hospitalization)
  Sender: FDA-Public Use
  Company Number: DK-009507513-1307DNK004362

PATIENT
  Sex: Female
  Weight: 83 kg

DRUGS (1)
  1. DIPROSPAN [Suspect]
     Active Substance: BETAMETHASONE DIPROPIONATE\BETAMETHASONE SODIUM PHOSPHATE
     Indication: SEASONAL ALLERGY
     Dosage: STRENGTH: 7 MG/ML

REACTIONS (1)
  - Palpitations [Not Recovered/Not Resolved]
